FAERS Safety Report 10253839 (Version 1)
Quarter: 2014Q2

REPORT INFORMATION
  Report Type: Spontaneous
  Country: US (occurrence: US)
  Receive Date: 20140623
  Receipt Date: 20140623
  Transmission Date: 20141212
  Serious: No
  Sender: FDA-Public Use
  Company Number: US-ZOGENIX, INC.-2011ZX000571

PATIENT
  Age: 54 Year
  Sex: Female
  Weight: 49.94 kg

DRUGS (4)
  1. SUMAVEL DOSEPRO [Suspect]
     Indication: MIGRAINE
  2. ZANAFLEX [Concomitant]
     Indication: ARTHRALGIA
     Route: 048
  3. PAMELOR [Concomitant]
     Indication: PAIN
     Route: 048
  4. NORFLEX [Concomitant]
     Indication: PAIN

REACTIONS (3)
  - Injection site bruising [Not Recovered/Not Resolved]
  - Paraesthesia [Recovered/Resolved]
  - Device malfunction [Recovered/Resolved]
